FAERS Safety Report 18338412 (Version 2)
Quarter: 2022Q4

REPORT INFORMATION
  Report Type: Spontaneous
  Country: DE (occurrence: DE)
  Receive Date: 20201002
  Receipt Date: 20221029
  Transmission Date: 20230113
  Serious: Yes (Hospitalization)
  Sender: FDA-Public Use
  Company Number: DE-ADRED-05468-01

PATIENT
  Age: 44 Year
  Sex: Male
  Weight: 91 kg

DRUGS (1)
  1. AMOXICILLIN [Suspect]
     Active Substance: AMOXICILLIN
     Indication: Product used for unknown indication
     Dosage: 1000 MG
     Route: 048
     Dates: start: 20200204, end: 20200214

REACTIONS (8)
  - Dehydration [Unknown]
  - Abdominal pain [Unknown]
  - Haematochezia [Unknown]
  - Fatigue [Unknown]
  - Diarrhoea [Unknown]
  - Nausea [Unknown]
  - General physical health deterioration [Unknown]
  - Clostridium difficile infection [Unknown]
